FAERS Safety Report 13111552 (Version 1)
Quarter: 2017Q1

REPORT INFORMATION
  Report Type: Spontaneous
  Country: US (occurrence: US)
  Receive Date: 20170112
  Receipt Date: 20170112
  Transmission Date: 20170428
  Serious: Yes (Other)
  Sender: FDA-Public Use
  Company Number: US-TEVA-728380USA

PATIENT
  Sex: Male
  Weight: 75 kg

DRUGS (2)
  1. BUDESONIDE. [Suspect]
     Active Substance: BUDESONIDE
     Dosage: 0.25 MG/2 ML
     Route: 055
  2. BUDESONIDE. [Suspect]
     Active Substance: BUDESONIDE

REACTIONS (5)
  - Dyspnoea [Unknown]
  - Pharyngeal disorder [Unknown]
  - Oesophageal disorder [Unknown]
  - Lichen planus [Not Recovered/Not Resolved]
  - Wrong technique in product usage process [Unknown]
